FAERS Safety Report 10077965 (Version 1)
Quarter: 2014Q2

REPORT INFORMATION
  Report Type: Spontaneous
  Country: CN (occurrence: CN)
  Receive Date: 20140415
  Receipt Date: 20140415
  Transmission Date: 20141212
  Serious: Yes (Hospitalization, Other)
  Sender: FDA-Public Use
  Company Number: CN-009507513-1404CHN007112

PATIENT
  Age: 69 Year
  Sex: Female
  Weight: 48 kg

DRUGS (1)
  1. TIENAM [Suspect]
     Dosage: 500 MG, QD
     Route: 041
     Dates: start: 20130314, end: 20130317

REACTIONS (1)
  - Epilepsy [Recovered/Resolved]
